APPROVED DRUG PRODUCT: LEVOCETIRIZINE DIHYDROCHLORIDE
Active Ingredient: LEVOCETIRIZINE DIHYDROCHLORIDE
Strength: 2.5MG/5ML
Dosage Form/Route: SOLUTION;ORAL
Application: A202915 | Product #001
Applicant: APOTEX INC
Approved: Aug 21, 2014 | RLD: No | RS: No | Type: DISCN